FAERS Safety Report 24131304 (Version 1)
Quarter: 2024Q3

REPORT INFORMATION
  Report Type: Report from Study
  Country: ZA (occurrence: ZA)
  Receive Date: 20240724
  Receipt Date: 20240724
  Transmission Date: 20241017
  Serious: Yes (Other)
  Sender: ROCHE
  Company Number: ZA-ROCHE-3064648

PATIENT
  Sex: Female

DRUGS (1)
  1. ACTEMRA [Suspect]
     Active Substance: TOCILIZUMAB
     Indication: Rheumatoid arthritis
     Route: 041

REACTIONS (8)
  - Hip arthroplasty [Recovering/Resolving]
  - Influenza [Unknown]
  - Off label use [Unknown]
  - Dysmenorrhoea [Unknown]
  - Pain [Unknown]
  - Haematoma [Recovering/Resolving]
  - Skin laceration [Unknown]
  - Wound complication [Unknown]
